FAERS Safety Report 4906556-4 (Version None)
Quarter: 2006Q1

REPORT INFORMATION
  Report Type: 
  Country: None (occurrence: None)
  Receive Date: 20060206
  Receipt Date: 20060127
  Transmission Date: 20060701
  Serious: Yes (Life-Threatening)
  Sender: FDA-Public Use
  Company Number: OSCN-GE-0601S-0022

PATIENT
  Age: 16 Year
  Sex: Female
  Weight: 40 kg

DRUGS (1)
  1. OMNISCAN [Suspect]
     Indication: OSTEOMYELITIS
     Dosage: 10 ML, SINGLE DOSE, I.V.
     Route: 042
     Dates: start: 20060126, end: 20060126

REACTIONS (3)
  - FALL [None]
  - NAUSEA [None]
  - VOMITING [None]
